FAERS Safety Report 20017933 (Version 1)
Quarter: 2021Q4

REPORT INFORMATION
  Report Type: Spontaneous
  Country: US (occurrence: US)
  Receive Date: 20211101
  Receipt Date: 20211101
  Transmission Date: 20220303
  Serious: Yes (Death, Hospitalization)
  Sender: FDA-Public Use
  Company Number: US-JNJFOC-20211047209

PATIENT
  Age: 26 Year
  Sex: Female
  Weight: 62 kg

DRUGS (5)
  1. ACETAMINOPHEN [Suspect]
     Active Substance: ACETAMINOPHEN
     Indication: Suicide attempt
     Dosage: SINGLE TOTAL DOSE 10000 MG OF ACETAMINOPHEN TAKEN ON 27/JAN/2000
     Route: 048
  2. DILANTIN [Concomitant]
     Active Substance: PHENYTOIN
     Indication: Product used for unknown indication
     Dosage: 360 MG/DAY FOR 12 MONTHS
     Route: 065
     Dates: end: 20000128
  3. TOPAMAX [Concomitant]
     Active Substance: TOPIRAMATE
     Indication: Product used for unknown indication
     Dosage: 500 MG/DAY FOR 12 MONTHS
     Route: 065
     Dates: end: 20000128
  4. ORTHO TRI CYCLEN [Concomitant]
     Active Substance: ETHINYL ESTRADIOL\NORGESTIMATE
     Indication: Product used for unknown indication
     Dosage: UNKNOWN DOSE FOR 12 MONTHS
     Route: 065
     Dates: end: 20000128
  5. PEPCID [Concomitant]
     Active Substance: FAMOTIDINE
     Indication: Product used for unknown indication
     Dosage: 20 MG/DAY FOR 12 MONTHS
     Route: 065
     Dates: end: 20000128

REACTIONS (6)
  - Suicide attempt [Fatal]
  - Brain oedema [Fatal]
  - Brain oedema [Fatal]
  - Aspergillus infection [Fatal]
  - Acute hepatic failure [Fatal]
  - Intentional overdose [Fatal]
